FAERS Safety Report 16923413 (Version 3)
Quarter: 2019Q4

REPORT INFORMATION
  Report Type: Report from Study
  Country: DE (occurrence: DE)
  Receive Date: 20191016
  Receipt Date: 20191113
  Transmission Date: 20200122
  Serious: Yes (Hospitalization)
  Sender: FDA-Public Use
  Company Number: DE-BIOGEN-2019BI00796157

PATIENT
  Sex: Male
  Weight: 85 kg

DRUGS (7)
  1. VALSARTAN. [Concomitant]
     Active Substance: VALSARTAN
     Indication: PRODUCT USED FOR UNKNOWN INDICATION
     Dosage: 160
     Route: 048
     Dates: start: 2006
  2. DAFIRO [Concomitant]
     Active Substance: AMLODIPINE\VALSARTAN
     Dosage: 5/160/25
     Route: 048
     Dates: start: 201606, end: 201805
  3. TAMSUBLOCK [Concomitant]
     Active Substance: TAMSULOSIN HYDROCHLORIDE
     Indication: LOSS OF BLADDER SENSATION
     Route: 048
     Dates: start: 201606
  4. NEBILET [Concomitant]
     Active Substance: NEBIVOLOL
     Indication: HYPERTENSION
     Route: 048
     Dates: start: 2006
  5. TYSABRI [Suspect]
     Active Substance: NATALIZUMAB
     Indication: MULTIPLE SCLEROSIS
     Route: 042
  6. ALLOPURINOL. [Concomitant]
     Active Substance: ALLOPURINOL
     Indication: PRODUCT USED FOR UNKNOWN INDICATION
     Route: 048
     Dates: start: 2010
  7. DAFIRO [Concomitant]
     Active Substance: AMLODIPINE\VALSARTAN
     Indication: HYPERTENSION
     Dosage: 5/160/12,5 MG
     Route: 048
     Dates: start: 20180531

REACTIONS (1)
  - Multiple sclerosis relapse [Recovered/Resolved with Sequelae]

NARRATIVE: CASE EVENT DATE: 20190801
